FAERS Safety Report 9459952 (Version 3)
Quarter: 2013Q4

REPORT INFORMATION
  Report Type: Spontaneous
  Country: JP (occurrence: JP)
  Receive Date: 20130815
  Receipt Date: 20131031
  Transmission Date: 20140711
  Serious: Yes (Other)
  Sender: FDA-Public Use
  Company Number: JP-VERTEX PHARMACEUTICALS INC-2013-008820

PATIENT
  Age: 40 Year
  Sex: Male

DRUGS (5)
  1. TELAVIC [Suspect]
     Indication: CHRONIC HEPATITIS C
     Dosage: 2250 MG, QD
     Route: 048
     Dates: start: 20130801, end: 20130808
  2. PEGINTRON [Concomitant]
     Dosage: 1.5 ?G/KG, QW
     Route: 058
     Dates: start: 20130801, end: 20130801
  3. REBETOL [Concomitant]
     Dosage: 1000 MG, QD
     Route: 048
     Dates: start: 20130801, end: 20130808
  4. CLARITIN REDITABS [Concomitant]
     Dosage: 10 MG, QD
     Route: 048
     Dates: end: 20130801
  5. PREDONINE [Concomitant]
     Dosage: 5-15 MG, QD
     Route: 048
     Dates: start: 20130627, end: 20130926

REACTIONS (1)
  - Erythema multiforme [Recovered/Resolved]
